FAERS Safety Report 16656886 (Version 1)
Quarter: 2019Q3

REPORT INFORMATION
  Report Type: Spontaneous
  Country: US (occurrence: US)
  Receive Date: 20190801
  Receipt Date: 20190801
  Transmission Date: 20191004
  Serious: No
  Sender: FDA-Public Use
  Company Number: US-EMD SERONO-9107025

PATIENT
  Age: 53 Year
  Sex: Female

DRUGS (1)
  1. REBIF [Suspect]
     Active Substance: INTERFERON BETA-1A
     Indication: MULTIPLE SCLEROSIS
     Dosage: 0.5 ML PREFILLED SYRINGE
     Route: 058
     Dates: start: 20151013

REACTIONS (2)
  - Urticaria [Unknown]
  - Drug interaction [Unknown]

NARRATIVE: CASE EVENT DATE: 20190701
